FAERS Safety Report 9615851 (Version 1)
Quarter: 2013Q4

REPORT INFORMATION
  Report Type: Spontaneous
  Country: US (occurrence: US)
  Receive Date: 20131011
  Receipt Date: 20131011
  Transmission Date: 20140711
  Serious: No
  Sender: FDA-Public Use
  Company Number: US-GLAXOSMITHKLINE-A1027997A

PATIENT
  Age: 74 Year
  Sex: Male

DRUGS (2)
  1. JALYN [Suspect]
     Indication: BENIGN PROSTATIC HYPERPLASIA
     Dosage: 1CAP PER DAY
     Route: 048
     Dates: start: 201212, end: 201306
  2. LEVOTHYROXIN [Concomitant]

REACTIONS (2)
  - Breast enlargement [Not Recovered/Not Resolved]
  - Libido decreased [Recovering/Resolving]
